FAERS Safety Report 16383556 (Version 1)
Quarter: 2019Q2

REPORT INFORMATION
  Report Type: Spontaneous
  Country: CN (occurrence: CN)
  Receive Date: 20190603
  Receipt Date: 20190603
  Transmission Date: 20190711
  Serious: Yes (Other)
  Sender: FDA-Public Use
  Company Number: CN-PFIZER INC-2019230086

PATIENT
  Age: 28 Year
  Sex: Male
  Weight: 55 kg

DRUGS (3)
  1. TACROLIMUS. [Concomitant]
     Active Substance: TACROLIMUS
     Indication: ACUTE LEUKAEMIA
  2. CELEBREX [Suspect]
     Active Substance: CELECOXIB
     Indication: OSTEONECROSIS
     Dosage: 200 MG, 1X/DAY
     Route: 048
     Dates: start: 20190203, end: 20190209
  3. ZEPOLAS [Concomitant]

REACTIONS (3)
  - Off label use [Unknown]
  - Product use in unapproved indication [Unknown]
  - Renal failure [Recovering/Resolving]

NARRATIVE: CASE EVENT DATE: 20190221
